FAERS Safety Report 24584312 (Version 1)
Quarter: 2024Q4

REPORT INFORMATION
  Report Type: Spontaneous
  Country: US (occurrence: None)
  Receive Date: 20241105
  Receipt Date: 20241105
  Transmission Date: 20250115
  Serious: Yes (Hospitalization)
  Sender: Public
  Company Number: None

PATIENT
  Age: 68 Year
  Sex: Female
  Weight: 87.09 kg

DRUGS (7)
  1. INVEGA [Suspect]
     Active Substance: PALIPERIDONE
     Indication: Mental disorder
     Dates: start: 20240301
  2. PROLIXIN [Suspect]
     Active Substance: FLUPHENAZINE HYDROCHLORIDE
     Indication: Mental disorder
     Dates: start: 20240301
  3. Novas [Concomitant]
  4. Lorsarin [Concomitant]
  5. Sythoid [Concomitant]
  6. TYLENOL [Concomitant]
  7. ADVIL [Concomitant]
     Active Substance: IBUPROFEN

REACTIONS (3)
  - Blindness [None]
  - Headache [None]
  - Headache [None]

NARRATIVE: CASE EVENT DATE: 20240706
